FAERS Safety Report 15274231 (Version 1)
Quarter: 2018Q4

REPORT INFORMATION
  Report Type: Spontaneous
  Country: FI (occurrence: FI)
  Receive Date: 20180814
  Receipt Date: 20180814
  Transmission Date: 20190204
  Serious: Yes (Other)
  Sender: FDA-Public Use
  Company Number: FI-TEVA-2018-FI-939691

PATIENT
  Age: 55 Year
  Sex: Female

DRUGS (3)
  1. SOY LECITHIN [Suspect]
     Active Substance: LECITHIN, SOYBEAN
     Route: 065
  2. ATORVASTATIN RATIOPHARM [Suspect]
     Active Substance: ATORVASTATIN
     Indication: CEREBROVASCULAR DISORDER
     Route: 065
  3. CLOPIDOGREL [Suspect]
     Active Substance: CLOPIDOGREL BISULFATE
     Indication: CEREBROVASCULAR DISORDER
     Route: 065

REACTIONS (10)
  - Product label issue [Unknown]
  - Hypersensitivity [Unknown]
  - Eye pruritus [Unknown]
  - Product substitution issue [Unknown]
  - Mucous membrane disorder [Unknown]
  - Vision blurred [Unknown]
  - Urethral disorder [Unknown]
  - Product complaint [Unknown]
  - Pharyngeal oedema [Unknown]
  - Asthma [Unknown]
